FAERS Safety Report 15814262 (Version 1)
Quarter: 2019Q1

REPORT INFORMATION
  Report Type: Spontaneous
  Country: US (occurrence: US)
  Receive Date: 20190111
  Receipt Date: 20190111
  Transmission Date: 20190417
  Serious: No
  Sender: FDA-Public Use
  Company Number: US-JAZZ-2018-US-018676

PATIENT
  Sex: Female
  Weight: 90.7 kg

DRUGS (2)
  1. PRIALT [Suspect]
     Active Substance: ZICONOTIDE ACETATE
     Indication: SPINAL DISORDER
     Dosage: UNK ?G, QH
     Route: 037
     Dates: start: 201803, end: 2018
  2. PRIALT [Suspect]
     Active Substance: ZICONOTIDE ACETATE
     Dosage: 0.64 ?G, QH
     Route: 037

REACTIONS (4)
  - Dry mouth [Unknown]
  - Glossodynia [Unknown]
  - Mouth ulceration [Unknown]
  - Drug ineffective [Unknown]

NARRATIVE: CASE EVENT DATE: 2018
